FAERS Safety Report 17665067 (Version 1)
Quarter: 2020Q2

REPORT INFORMATION
  Report Type: Spontaneous
  Country: US (occurrence: US)
  Receive Date: 20200413
  Receipt Date: 20200413
  Transmission Date: 20200713
  Serious: Yes (Other)
  Sender: FDA-Public Use
  Company Number: None

PATIENT
  Age: 36 Year
  Sex: Female
  Weight: 75.15 kg

DRUGS (4)
  1. DUPIXENT [Suspect]
     Active Substance: DUPILUMAB
     Indication: DERMATITIS ATOPIC
     Dosage: ?          OTHER FREQUENCY:TWICE A MONTH;?
     Route: 058
     Dates: start: 20190625, end: 20200412
  2. WOMENS MULTIVITAMIN [Concomitant]
  3. PROBIOTIC [Concomitant]
     Active Substance: PROBIOTICS NOS
  4. KETOTIFIN [Concomitant]

REACTIONS (3)
  - Alopecia [None]
  - Weight increased [None]
  - Dermatitis atopic [None]

NARRATIVE: CASE EVENT DATE: 20190701
